FAERS Safety Report 4996506-7 (Version None)
Quarter: 2006Q2

REPORT INFORMATION
  Report Type: 
  Country: None (occurrence: None)
  Receive Date: 20060509
  Receipt Date: 20060424
  Transmission Date: 20061013
  Serious: Yes (Hospitalization, Other)
  Sender: FDA-Public Use
  Company Number: PHEH2006US05372

PATIENT
  Age: 35 Year
  Sex: Female
  Weight: 80.725 kg

DRUGS (11)
  1. EXJADE [Suspect]
     Indication: BLOOD IRON INCREASED
     Dates: start: 20060401
  2. EXJADE [Suspect]
     Dosage: 1500 MG, QD
     Dates: start: 20060329, end: 20060401
  3. LYRICA [Concomitant]
     Dosage: 75 MG, QD
     Route: 048
  4. ALLOPURINOL [Concomitant]
     Dosage: 30 MG, QD
     Route: 048
  5. PHENERGAN HCL [Concomitant]
     Dosage: 25 MG, PRN
     Route: 048
  6. COUMADIN [Concomitant]
     Dosage: 1 MG, QD
     Route: 048
  7. BENZOTROPINE [Concomitant]
     Dosage: 1 MG, QD
     Route: 048
  8. LORTAB [Concomitant]
     Dosage: 10/500, PRN
     Route: 048
  9. AMBIEN [Concomitant]
     Dosage: 10 MG, QHS
     Route: 048
  10. XANAX [Concomitant]
     Dosage: 0.5 MG, PRN
     Route: 048
  11. ABILIFY [Suspect]
     Indication: SCHIZOPHRENIA, PARANOID TYPE
     Dosage: 35 MG, QHS
     Route: 048

REACTIONS (6)
  - ANXIETY [None]
  - DIARRHOEA [None]
  - FEELING ABNORMAL [None]
  - NERVOUSNESS [None]
  - SCHIZOPHRENIA [None]
  - SICKLE CELL ANAEMIA WITH CRISIS [None]
